FAERS Safety Report 9889438 (Version 2)
Quarter: 2014Q2

REPORT INFORMATION
  Report Type: Spontaneous
  Country: US (occurrence: US)
  Receive Date: 20140211
  Receipt Date: 20140501
  Transmission Date: 20141212
  Serious: Yes (Other)
  Sender: FDA-Public Use
  Company Number: US-GILEAD-2014-0094055

PATIENT
  Sex: Female

DRUGS (4)
  1. LETAIRIS [Suspect]
     Indication: PULMONARY HYPERTENSION
     Dosage: 5 MG, UNK
     Route: 065
     Dates: start: 20140103
  2. LETAIRIS [Suspect]
     Indication: MITRAL VALVE INCOMPETENCE
  3. LETAIRIS [Suspect]
     Indication: CHRONIC OBSTRUCTIVE PULMONARY DISEASE
  4. LETAIRIS [Suspect]
     Indication: LUNG NEOPLASM MALIGNANT

REACTIONS (1)
  - Lung neoplasm malignant [Unknown]
